FAERS Safety Report 24244445 (Version 2)
Quarter: 2025Q3

REPORT INFORMATION
  Report Type: Report from Study
  Country: AU (occurrence: AU)
  Receive Date: 20240823
  Receipt Date: 20250829
  Transmission Date: 20251020
  Serious: Yes (Hospitalization)
  Sender: ABBVIE
  Company Number: AU-ABBVIE-5888065

PATIENT
  Age: 65 Year
  Sex: Female
  Weight: 75 kg

DRUGS (10)
  1. UPADACITINIB [Suspect]
     Active Substance: UPADACITINIB
     Indication: Dermatitis atopic
     Route: 048
     Dates: start: 20240518, end: 20240805
  2. UPADACITINIB [Suspect]
     Active Substance: UPADACITINIB
     Indication: Dermatitis atopic
     Dosage: UNIT-MG
     Route: 048
     Dates: start: 20250528, end: 20250707
  3. VENLAFAXINE [Concomitant]
     Active Substance: VENLAFAXINE HYDROCHLORIDE
     Indication: Post-traumatic stress disorder
     Route: 048
     Dates: start: 20001001
  4. MIANSERIN [Concomitant]
     Active Substance: MIANSERIN
     Indication: Post-traumatic stress disorder
     Route: 048
     Dates: start: 20001001
  5. LEVOTHYROXINE [Concomitant]
     Active Substance: LEVOTHYROXINE
     Indication: Hypothyroidism
     Route: 048
     Dates: start: 19981201
  6. VITAMIN D [Concomitant]
     Active Substance: VITAMIN D NOS
     Indication: Vitamin D deficiency
     Route: 048
     Dates: start: 20051201
  7. SENOKOT [Concomitant]
     Active Substance: SENNOSIDES
     Indication: Constipation
     Route: 048
     Dates: start: 20230310
  8. BETAMETHASONE DIPROPIONATE [Concomitant]
     Active Substance: BETAMETHASONE DIPROPIONATE
     Indication: Dermatitis atopic
     Dosage: 0.05%;?ROUTE: TOPICAL
     Dates: start: 20240504
  9. EZEMICHOL [Concomitant]
     Indication: Blood cholesterol increased
     Route: 048
     Dates: start: 20240716
  10. IRON [Concomitant]
     Active Substance: IRON
     Indication: Anaemia
     Route: 042
     Dates: start: 20240718, end: 20240718

REACTIONS (1)
  - Septic arthritis staphylococcal [Not Recovered/Not Resolved]

NARRATIVE: CASE EVENT DATE: 20240805
